FAERS Safety Report 10549766 (Version 2)
Quarter: 2015Q2

REPORT INFORMATION
  Report Type: Report from Study
  Country: US (occurrence: US)
  Receive Date: 20141028
  Receipt Date: 20150508
  Transmission Date: 20150821
  Serious: Yes (Hospitalization, Other)
  Sender: FDA-Public Use
  Company Number: US-GILEAD-2014-0119717

PATIENT
  Age: 61 Year
  Sex: Female

DRUGS (15)
  1. POTASSIUM CL [Concomitant]
     Active Substance: POTASSIUM CHLORIDE
  2. COZAAR [Concomitant]
     Active Substance: LOSARTAN POTASSIUM
  3. SIMVASTATIN. [Concomitant]
     Active Substance: SIMVASTATIN
  4. AMBRISENTAN [Suspect]
     Active Substance: AMBRISENTAN
     Indication: PULMONARY HYPERTENSION
     Dosage: 5 MG, QD
     Route: 065
     Dates: start: 20140417, end: 201410
  5. AMBRISENTAN [Suspect]
     Active Substance: AMBRISENTAN
     Indication: PULMONARY EMBOLISM
  6. CITALOPRAM [Concomitant]
     Active Substance: CITALOPRAM HYDROBROMIDE
  7. SILDENAFIL. [Concomitant]
     Active Substance: SILDENAFIL
  8. METHYLPHENIDATE [Concomitant]
     Active Substance: METHYLPHENIDATE
  9. ADCIRCA [Concomitant]
     Active Substance: TADALAFIL
  10. ENOXAPARIN [Concomitant]
     Active Substance: ENOXAPARIN
  11. FUROSEMIDE. [Concomitant]
     Active Substance: FUROSEMIDE
  12. FLUTICASONE                        /00972202/ [Concomitant]
  13. WARFARIN [Concomitant]
     Active Substance: WARFARIN
  14. LEVOTHYROXINE [Concomitant]
     Active Substance: LEVOTHYROXINE
  15. SPIRONOLACTONE. [Concomitant]
     Active Substance: SPIRONOLACTONE

REACTIONS (2)
  - Lung operation [Recovered/Resolved]
  - Cardiac operation [Recovered/Resolved]
